FAERS Safety Report 4319408-8 (Version None)
Quarter: 2004Q1

REPORT INFORMATION
  Report Type: 
  Country: None (occurrence: None)
  Receive Date: 20040318
  Receipt Date: 20040318
  Transmission Date: 20041129
  Serious: No
  Sender: FDA-Public Use
  Company Number: None

PATIENT
  Age: 61 Year
  Sex: Male
  Weight: 80.5 kg

DRUGS (10)
  1. TAXOTERE [Suspect]
     Indication: LUNG NEOPLASM MALIGNANT
     Dosage: 40 MG-20 WEEKLY INTRAVENOUS
     Route: 042
     Dates: start: 20040301, end: 20040315
  2. DEXAMETHASONE [Concomitant]
  3. KYTRIL [Concomitant]
  4. ENSURE [Concomitant]
  5. SERTRALINE HCL [Concomitant]
  6. DOCUSATE NA [Concomitant]
  7. ALPRAZOLAM [Concomitant]
  8. COMPAZINE [Concomitant]
  9. OXYCODONE AND ACETAMINOPHEN [Concomitant]
  10. CLELBREX [Concomitant]

REACTIONS (5)
  - BRONCHOSPASM [None]
  - DRUG TOXICITY [None]
  - FLUSHING [None]
  - LOSS OF CONSCIOUSNESS [None]
  - THROAT TIGHTNESS [None]
